FAERS Safety Report 13276557 (Version 2)
Quarter: 2017Q1

REPORT INFORMATION
  Report Type: Spontaneous
  Country: ES (occurrence: ES)
  Receive Date: 20170228
  Receipt Date: 20170317
  Transmission Date: 20170428
  Serious: Yes (Hospitalization, Other)
  Sender: FDA-Public Use
  Company Number: ES-SHIRE-ES201704184

PATIENT
  Age: 46 Year
  Sex: Female

DRUGS (4)
  1. ICATIBANT [Suspect]
     Active Substance: ICATIBANT ACETATE
     Indication: ANGIOEDEMA
     Dosage: 30 MG, AS REQ^D
     Route: 058
  2. TRIPTORELIN [Concomitant]
     Active Substance: TRIPTORELIN
     Indication: ANGIOEDEMA
     Dosage: UNK, UNKNOWN
     Route: 065
  3. DANAZOL. [Concomitant]
     Active Substance: DANAZOL
     Indication: ANGIOEDEMA
     Dosage: 2 MG/8, UNKNOWN
     Route: 065
  4. METHYLPREDNISOLONE. [Concomitant]
     Active Substance: METHYLPREDNISOLONE
     Indication: ANGIOEDEMA
     Dosage: 40 MG/12, UNKNOWN
     Route: 065

REACTIONS (3)
  - Product use issue [Unknown]
  - Angioedema [Unknown]
  - Laryngeal oedema [Unknown]
